FAERS Safety Report 9377840 (Version 1)
Quarter: 2013Q3

REPORT INFORMATION
  Report Type: Spontaneous
  Country: US (occurrence: US)
  Receive Date: 20130701
  Receipt Date: 20130701
  Transmission Date: 20140515
  Serious: No
  Sender: FDA-Public Use
  Company Number: US-GLAXOSMITHKLINE-A1022221A

PATIENT
  Sex: 0

DRUGS (3)
  1. IMITREX [Suspect]
     Indication: MIGRAINE
  2. GENERIC MEDICATION [Suspect]
     Indication: MIGRAINE
  3. AMERGE [Concomitant]

REACTIONS (1)
  - Adverse drug reaction [Unknown]
